FAERS Safety Report 9144139 (Version 1)
Quarter: 2013Q1

REPORT INFORMATION
  Report Type: Spontaneous
  Country: US (occurrence: US)
  Receive Date: 20130306
  Receipt Date: 20130306
  Transmission Date: 20140127
  Serious: Yes (Hospitalization)
  Sender: FDA-Public Use
  Company Number: US-ROCHE-1197383

PATIENT
  Sex: Male

DRUGS (4)
  1. AVASTIN [Suspect]
     Indication: PRODUCT USED FOR UNKNOWN INDICATION
     Route: 042
     Dates: start: 201201
  2. IRINOTECAN [Concomitant]
     Route: 042
     Dates: start: 201201
  3. 5-FU [Concomitant]
     Route: 042
     Dates: start: 201201
  4. LEUCOVORIN CALCIUM [Concomitant]
     Route: 042
     Dates: start: 201201

REACTIONS (5)
  - Dehydration [Unknown]
  - Decreased appetite [Unknown]
  - Diarrhoea [Unknown]
  - Dry skin [Unknown]
  - Blood creatinine abnormal [Unknown]
